FAERS Safety Report 10062760 (Version 1)
Quarter: 2014Q2

REPORT INFORMATION
  Report Type: Spontaneous
  Country: US (occurrence: US)
  Receive Date: 20140407
  Receipt Date: 20140407
  Transmission Date: 20141212
  Serious: No
  Sender: FDA-Public Use
  Company Number: US-TEVA-473129USA

PATIENT
  Sex: Male
  Weight: 93.07 kg

DRUGS (10)
  1. NUVIGIL [Suspect]
     Indication: NARCOLEPSY
     Route: 048
  2. SINEMET [Concomitant]
     Indication: PARKINSON^S DISEASE
     Dosage: 35/100
  3. ROPINIROLE [Concomitant]
     Indication: PARKINSON^S DISEASE
     Dosage: 12 MILLIGRAM DAILY;
  4. PROSCAR [Concomitant]
     Indication: PROSTATOMEGALY
  5. FLOMAX [Concomitant]
     Indication: PROSTATOMEGALY
  6. OMEPRAZOLE [Concomitant]
     Indication: GASTROOESOPHAGEAL REFLUX DISEASE
  7. ASPIRIN [Concomitant]
     Indication: ATRIAL FIBRILLATION
  8. AMBIEN [Concomitant]
     Indication: SLEEP DISORDER
  9. ICY HOT [Concomitant]
     Indication: PAIN
  10. ANALGESICS [Concomitant]
     Indication: MYALGIA
     Route: 061

REACTIONS (2)
  - Rash [Not Recovered/Not Resolved]
  - Wrong technique in drug usage process [Unknown]
